FAERS Safety Report 8266689-4 (Version None)
Quarter: 2012Q2

REPORT INFORMATION
  Report Type: 
  Country: None (occurrence: None)
  Receive Date: 20120408
  Receipt Date: 20120330
  Transmission Date: 20120825
  Serious: Yes (Hospitalization)
  Sender: FDA-Public Use
  Company Number: ES-BRISTOL-MYERS SQUIBB COMPANY-16490120

PATIENT
  Age: 79 Year
  Sex: Male

DRUGS (9)
  1. IPILIMUMAB [Suspect]
     Indication: MALIGNANT MELANOMA
     Route: 042
     Dates: start: 20120110, end: 20120314
  2. ENOXAPARIN SODIUM [Concomitant]
  3. ZOLPIDEM TARTRATE [Concomitant]
  4. TRANXILIUM [Concomitant]
  5. ASTUDAL [Concomitant]
  6. ACETAMINOPHEN [Concomitant]
  7. OMEPRAZOLE [Concomitant]
  8. BISOPROLOL FUMARATE [Concomitant]
  9. DIGOXIN [Concomitant]

REACTIONS (3)
  - DIARRHOEA [None]
  - VOMITING [None]
  - PULMONARY ALVEOLAR HAEMORRHAGE [None]
